FAERS Safety Report 9149131 (Version 1)
Quarter: 2013Q1

REPORT INFORMATION
  Report Type: Spontaneous
  Country: US (occurrence: US)
  Receive Date: 20130308
  Receipt Date: 20130308
  Transmission Date: 20140127
  Serious: Yes (Hospitalization)
  Sender: FDA-Public Use
  Company Number: US-B.I. PHARMACEUTICALS,INC./RIDGEFIELD-2013-BI-05297BP

PATIENT
  Sex: 0

DRUGS (3)
  1. PRADAXA [Suspect]
     Indication: CEREBROVASCULAR ACCIDENT PROPHYLAXIS
     Dosage: 300 MG
     Route: 048
     Dates: end: 2012
  2. PRADAXA [Suspect]
     Indication: ATRIAL FIBRILLATION
  3. HERBAL MEDICATIONS [Concomitant]

REACTIONS (2)
  - Gastrointestinal perforation [Recovered/Resolved]
  - Haemorrhage [Recovered/Resolved]
